FAERS Safety Report 7413939-X (Version None)
Quarter: 2011Q2

REPORT INFORMATION
  Report Type: 
  Country: None (occurrence: None)
  Receive Date: 20110414
  Receipt Date: 20110404
  Transmission Date: 20111010
  Serious: Yes (Hospitalization)
  Sender: FDA-Public Use
  Company Number: 2006BI003777

PATIENT
  Age: 40 Year
  Sex: Female

DRUGS (2)
  1. AVONEX [Suspect]
     Indication: MULTIPLE SCLEROSIS
     Route: 030
     Dates: start: 19990601, end: 20030101
  2. AVONEX [Suspect]
     Route: 030
     Dates: start: 20030101, end: 20070830

REACTIONS (3)
  - UTERINE LEIOMYOMA [None]
  - WEIGHT DECREASED [None]
  - PAIN [None]
